FAERS Safety Report 4801808-0 (Version None)
Quarter: 2005Q3

REPORT INFORMATION
  Report Type: 
  Country: None (occurrence: None)
  Receive Date: 20050929
  Receipt Date: 20050630
  Transmission Date: 20060218
  Serious: Yes (Hospitalization)
  Sender: FDA-Public Use
  Company Number: 05P-163-0304691-00

PATIENT
  Age: 31 Year
  Sex: Male
  Weight: 68.0396 kg

DRUGS (9)
  1. HUMIRA [Suspect]
     Indication: RHEUMATOID ARTHRITIS
     Dosage: 40 MG, 1 IN 2 WK, SUBCUTANEOUS
     Route: 058
     Dates: start: 20040101, end: 20050301
  2. HUMIRA [Suspect]
     Indication: RHEUMATOID ARTHRITIS
     Dosage: 40 MG, 1 IN 2 WK, SUBCUTANEOUS
     Route: 058
     Dates: start: 20050301
  3. METHOTREXATE SODIUM [Concomitant]
  4. PREDNISONE TAB [Concomitant]
  5. CELECOXIB [Concomitant]
  6. SERTRALINE HYDROCHLORIDE [Concomitant]
  7. VICODIN [Concomitant]
  8. CALCIUM GLUCONATE [Concomitant]
  9. MULTI-VITAMINS [Concomitant]

REACTIONS (1)
  - CHOLECYSTITIS [None]
